FAERS Safety Report 21575779 (Version 1)
Quarter: 2022Q4

REPORT INFORMATION
  Report Type: Spontaneous
  Country: US (occurrence: US)
  Receive Date: 20221110
  Receipt Date: 20221110
  Transmission Date: 20230113
  Serious: Yes (Other)
  Sender: FDA-Public Use
  Company Number: US-CADILA HEALTHCARE LIMITED-US-ZYDUS-084382

PATIENT

DRUGS (5)
  1. DOXYCYCLINE [Interacting]
     Active Substance: DOXYCYCLINE
     Indication: Product used for unknown indication
     Dosage: 100 MILLIGRAM, BID
     Route: 048
  2. METHYLPREDNISOLONE [Suspect]
     Active Substance: METHYLPREDNISOLONE
     Indication: Optic neuritis
     Dosage: 1000 MILLIGRAM, EVERY 20 HOURS
     Route: 042
  3. RIFAMPIN [Interacting]
     Active Substance: RIFAMPIN
     Indication: Product used for unknown indication
     Dosage: 300 MILLIGRAM, BID, FOR 28 DAYS
  4. PREDNISONE [Interacting]
     Active Substance: PREDNISONE
     Indication: Product used for unknown indication
     Dosage: 1 MILLIGRAM/KILOGRAM, QD, FOR 11 DAYS
  5. PREDNISONE [Interacting]
     Active Substance: PREDNISONE
     Dosage: 50 MILLIGRAM, QD
     Route: 065

REACTIONS (3)
  - Drug interaction [Unknown]
  - Therapeutic product effect decreased [Unknown]
  - Cat scratch disease [Unknown]
